FAERS Safety Report 4545042-0 (Version None)
Quarter: 2005Q1

REPORT INFORMATION
  Report Type: 
  Country: None (occurrence: None)
  Receive Date: 20050103
  Receipt Date: 20041216
  Transmission Date: 20050727
  Serious: Yes (Hospitalization)
  Sender: FDA-Public Use
  Company Number: 204070

PATIENT
  Age: 37 Year
  Sex: Female
  Weight: 56 kg

DRUGS (5)
  1. AVONEX [Suspect]
     Indication: MULTIPLE SCLEROSIS
     Dosage: 30 UG;QW;IM
     Route: 030
     Dates: start: 19980917, end: 20030101
  2. AVONEX LIQUID (INTEFERON BETA) [Suspect]
     Indication: MULTIPLE SCLEROSIS
     Dosage: 30 UG;QW;IM
     Route: 030
     Dates: start: 20030101
  3. GYNODIAN [Concomitant]
  4. LAFAMME [Concomitant]
  5. PANTOPRAZOL [Concomitant]

REACTIONS (8)
  - ALOPECIA [None]
  - CERVIX CARCINOMA [None]
  - CERVIX CARCINOMA RECURRENT [None]
  - GASTROENTERITIS RADIATION [None]
  - METASTASES TO LYMPH NODES [None]
  - THERAPY NON-RESPONDER [None]
  - UTERINE LEIOMYOMA [None]
  - VAGINAL INFECTION [None]
